FAERS Safety Report 6771542-9 (Version None)
Quarter: 2010Q2

REPORT INFORMATION
  Report Type: 
  Country: None (occurrence: None)
  Receive Date: 20100616
  Receipt Date: 20100607
  Transmission Date: 20101027
  Serious: Yes (Hospitalization)
  Sender: FDA-Public Use
  Company Number: US-ROCHE-708748

PATIENT
  Sex: Female

DRUGS (4)
  1. ROCEPHIN [Suspect]
     Route: 065
     Dates: start: 20100501, end: 20100501
  2. REVLIMID [Suspect]
     Indication: MULTIPLE MYELOMA
     Dosage: FOR 21 DAYS
     Route: 048
     Dates: start: 20100416
  3. DEXAMETHASONE [Suspect]
     Indication: MULTIPLE MYELOMA
     Route: 065
  4. VANCOMYCIN [Suspect]
     Indication: DRUG USE FOR UNKNOWN INDICATION
     Route: 065

REACTIONS (3)
  - CELLULITIS [None]
  - DRUG HYPERSENSITIVITY [None]
  - NEUTROPHIL COUNT DECREASED [None]
